FAERS Safety Report 4289359-6 (Version None)
Quarter: 2004Q1

REPORT INFORMATION
  Report Type: 
  Country: None (occurrence: None)
  Receive Date: 20040206
  Receipt Date: 20040129
  Transmission Date: 20041129
  Serious: Yes (Death)
  Sender: FDA-Public Use
  Company Number: US-JNJFOC-20030901361

PATIENT
  Age: 93 Year
  Sex: Female
  Weight: 58.9676 kg

DRUGS (4)
  1. RISPERDAL [Suspect]
     Indication: PSYCHOTIC DISORDER
     Dosage: 0.5 MG, 2 IN 1 DAY, ORAL
     Route: 048
     Dates: start: 20021111, end: 20030115
  2. RISPERDAL [Suspect]
     Indication: PSYCHOTIC DISORDER
     Dosage: 0.5 MG, 2 IN 1 DAY, ORAL
     Route: 048
     Dates: start: 20030716, end: 20030806
  3. HALDOL [Concomitant]
  4. ATENOLOL [Concomitant]

REACTIONS (4)
  - DEMENTIA ALZHEIMER'S TYPE [None]
  - DISEASE PROGRESSION [None]
  - TRANSIENT ISCHAEMIC ATTACK [None]
  - URINARY TRACT INFECTION [None]
